FAERS Safety Report 19730133 (Version 2)
Quarter: 2021Q3

REPORT INFORMATION
  Report Type: Spontaneous
  Country: US (occurrence: US)
  Receive Date: 20210820
  Receipt Date: 20210907
  Transmission Date: 20211014
  Serious: Yes (Other)
  Sender: FDA-Public Use
  Company Number: US-ALLERGAN-2128855US

PATIENT
  Sex: Male

DRUGS (4)
  1. LATISSE [Suspect]
     Active Substance: BIMATOPROST
     Indication: MADAROSIS
     Dosage: UNK
  2. EAR ANTIBIOTIC [Concomitant]
  3. REGULAR MEDICATIONS [Concomitant]
  4. ORAL ANTIBIOTIC [Concomitant]

REACTIONS (6)
  - Illness [Unknown]
  - Ear pain [Not Recovered/Not Resolved]
  - Sensory disturbance [Unknown]
  - Deafness unilateral [Not Recovered/Not Resolved]
  - Accidental exposure to product [Unknown]
  - Inappropriate schedule of product administration [Unknown]
